FAERS Safety Report 24447656 (Version 1)
Quarter: 2024Q4

REPORT INFORMATION
  Report Type: Spontaneous
  Country: US (occurrence: US)
  Receive Date: 20241016
  Receipt Date: 20241016
  Transmission Date: 20250115
  Serious: No
  Sender: SANOFI AVENTIS
  Company Number: US-SA-2024SA296816

PATIENT
  Sex: Male
  Weight: 36.36 kg

DRUGS (1)
  1. DUPIXENT [Suspect]
     Active Substance: DUPILUMAB
     Indication: Dermatitis atopic
     Dosage: 200.000MG QOW
     Route: 058

REACTIONS (2)
  - Hypersensitivity [Recovered/Resolved]
  - Inappropriate schedule of product administration [Unknown]
